FAERS Safety Report 8269730-8 (Version None)
Quarter: 2012Q2

REPORT INFORMATION
  Report Type: 
  Country: None (occurrence: None)
  Receive Date: 20120406
  Receipt Date: 20120323
  Transmission Date: 20120825
  Serious: Yes (Life-Threatening, Hospitalization, Other)
  Sender: FDA-Public Use
  Company Number: 2012ST000320

PATIENT
  Age: 13 Year
  Sex: Female
  Weight: 83 kg

DRUGS (9)
  1. MERCAPTOPURINE [Concomitant]
  2. ZOFRAN [Concomitant]
  3. ONCASPAR [Suspect]
  4. ONCASPAR [Suspect]
     Indication: ACUTE LYMPHOCYTIC LEUKAEMIA
     Dosage: 4925 IU; X1; SC
     Route: 058
     Dates: start: 20111107, end: 20111107
  5. ONCASPAR [Suspect]
     Indication: ACUTE LYMPHOCYTIC LEUKAEMIA
     Dosage: 4925 IU; X1; SC
     Route: 058
     Dates: start: 20111220, end: 20111220
  6. ONCASPAR [Suspect]
     Indication: ACUTE LYMPHOCYTIC LEUKAEMIA
     Dosage: 4925 IU; X1; SC
     Route: 058
     Dates: start: 20120117, end: 20120117
  7. METHOTREXATE [Concomitant]
  8. CYCLOPHOSPHAMIDE [Concomitant]
  9. CYTARABINE [Concomitant]

REACTIONS (10)
  - PANCREATITIS NECROTISING [None]
  - PANCREATIC PSEUDOCYST [None]
  - PANCREATITIS ACUTE [None]
  - HEPATIC FAILURE [None]
  - DIABETES MELLITUS [None]
  - RESPIRATORY FAILURE [None]
  - DISSEMINATED INTRAVASCULAR COAGULATION [None]
  - PANCREATIC INSUFFICIENCY [None]
  - RENAL FAILURE [None]
  - PLEURAL EFFUSION [None]
